FAERS Safety Report 5477597-6 (Version None)
Quarter: 2007Q4

REPORT INFORMATION
  Report Type: 
  Country: None (occurrence: None)
  Receive Date: 20071002
  Receipt Date: 20070914
  Transmission Date: 20080405
  Serious: Yes (Hospitalization, Disabling, Other)
  Sender: FDA-Public Use
  Company Number: 230022M07DEU

PATIENT
  Age: 39 Year
  Sex: Female
  Weight: 90 kg

DRUGS (2)
  1. REBIF [Suspect]
     Indication: MULTIPLE SCLEROSIS
     Dosage: 44 MCG, 3 IN 1 WEEKS, SUBCUTANEOUS
     Route: 058
     Dates: end: 20050307
  2. MITOXANTRONE HYDROCHLORIDE (MITOXANTRONE HYDROCHLORIDE) [Suspect]
     Indication: MULTIPLE SCLEROSIS
     Dosage: 22 MG, 1 IN 3 MONTHS, INTRAVENOUS (NOT OTHERWISE SPECIFIED)
     Route: 042
     Dates: start: 19981106, end: 19990924

REACTIONS (18)
  - BIOPSY KIDNEY ABNORMAL [None]
  - CEREBRAL INFARCTION [None]
  - CONDITION AGGRAVATED [None]
  - COOMBS TEST NEGATIVE [None]
  - DISORIENTATION [None]
  - GASTRITIS EROSIVE [None]
  - GASTROINTESTINAL HAEMORRHAGE [None]
  - LEUKOCYTOSIS [None]
  - MENTAL DISORDER DUE TO A GENERAL MEDICAL CONDITION [None]
  - MULTIPLE SCLEROSIS [None]
  - NEPHROSCLEROSIS [None]
  - NEPHROTIC SYNDROME [None]
  - RECTAL ULCER [None]
  - RENAL ATROPHY [None]
  - SCAR [None]
  - SCOTOMA [None]
  - THROMBOCYTHAEMIA [None]
  - THROMBOTIC THROMBOCYTOPENIC PURPURA [None]
